FAERS Safety Report 10956769 (Version 1)
Quarter: 2015Q1

REPORT INFORMATION
  Report Type: Spontaneous
  Country: US (occurrence: US)
  Receive Date: 20150326
  Receipt Date: 20150326
  Transmission Date: 20150721
  Serious: No
  Sender: FDA-Public Use
  Company Number: US-MYLANLABS-2014M1001839

PATIENT
  Sex: Female
  Weight: 61.22 kg

DRUGS (7)
  1. EMSAM [Suspect]
     Active Substance: SELEGILINE
     Indication: DEPRESSION
  2. SODIUM [Concomitant]
     Active Substance: SODIUM
     Indication: BLOOD PRESSURE
     Dosage: UNK, HS
  3. EMSAM [Suspect]
     Active Substance: SELEGILINE
     Indication: ANXIETY
  4. SENSIPAR [Concomitant]
     Active Substance: CINACALCET HYDROCHLORIDE
     Indication: PARATHYROID DISORDER
     Dosage: UNK
  5. VITAMIN D                          /00107901/ [Concomitant]
     Active Substance: ERGOCALCIFEROL
     Dosage: UNK
  6. XANAX [Concomitant]
     Active Substance: ALPRAZOLAM
     Dosage: UNK, PRN
  7. EMSAM [Suspect]
     Active Substance: SELEGILINE
     Dosage: 6 MG, QD, CHANGES QD
     Route: 062
     Dates: start: 2014

REACTIONS (4)
  - Asthenia [Not Recovered/Not Resolved]
  - Dizziness [Not Recovered/Not Resolved]
  - Anxiety [Not Recovered/Not Resolved]
  - Headache [Not Recovered/Not Resolved]

NARRATIVE: CASE EVENT DATE: 2014
